FAERS Safety Report 4742879-X (Version None)
Quarter: 2005Q3

REPORT INFORMATION
  Report Type: 
  Country: None (occurrence: None)
  Receive Date: 20050811
  Receipt Date: 20050805
  Transmission Date: 20060218
  Serious: Yes (Other)
  Sender: FDA-Public Use
  Company Number: PHBS2005CH11410

PATIENT
  Age: 17 Year
  Sex: Male

DRUGS (2)
  1. LEPONEX [Suspect]
     Indication: PSYCHOTIC DISORDER
     Dosage: 300 MG/D
     Route: 048
     Dates: start: 20050610
  2. FLOXYFRAL [Suspect]
     Indication: BIPOLAR DISORDER
     Dosage: 250 MG/D
     Route: 048
     Dates: start: 20050418

REACTIONS (9)
  - ACCOMMODATION DISORDER [None]
  - CONSTIPATION [None]
  - DRUG INTERACTION [None]
  - DRUG LEVEL INCREASED [None]
  - ENURESIS [None]
  - HYPERVENTILATION [None]
  - SOMNOLENCE [None]
  - TACHYCARDIA [None]
  - TREMOR [None]
